FAERS Safety Report 5820369-0 (Version None)
Quarter: 2008Q3

REPORT INFORMATION
  Report Type: 
  Country: None (occurrence: None)
  Receive Date: 20080724
  Receipt Date: 20070731
  Transmission Date: 20090109
  Serious: No
  Sender: FDA-Public Use
  Company Number: A0657219A

PATIENT
  Age: 67 Year
  Sex: Male
  Weight: 142.3 kg

DRUGS (5)
  1. AVANDIA [Suspect]
     Dosage: 4MG PER DAY
     Route: 048
     Dates: end: 20070617
  2. AVODART [Concomitant]
  3. FUROSEMIDE [Concomitant]
  4. POTASSIUM CHLORIDE [Concomitant]
  5. LISINOPRIL [Concomitant]

REACTIONS (2)
  - BLOOD GLUCOSE INCREASED [None]
  - HYPERSENSITIVITY [None]
